FAERS Safety Report 6127507-3 (Version None)
Quarter: 2009Q1

REPORT INFORMATION
  Report Type: 
  Country: None (occurrence: None)
  Receive Date: 20090323
  Receipt Date: 20090317
  Transmission Date: 20090719
  Serious: Yes (Hospitalization)
  Sender: FDA-Public Use
  Company Number: US-WYE-H08628109

PATIENT
  Sex: Female

DRUGS (5)
  1. PREMPRO [Suspect]
  2. ACTIVELLA [Suspect]
  3. PROVERA [Suspect]
  4. PREMARIN [Suspect]
  5. CYCRIN [Suspect]

REACTIONS (3)
  - ANGINA UNSTABLE [None]
  - MYOCARDIAL INFARCTION [None]
  - THROMBOPHLEBITIS SUPERFICIAL [None]
